FAERS Safety Report 7137647-8 (Version None)
Quarter: 2010Q4

REPORT INFORMATION
  Report Type: 
  Country: None (occurrence: None)
  Receive Date: 20101102
  Receipt Date: 20100113
  Transmission Date: 20110411
  Serious: Yes (Other)
  Sender: FDA-Public Use
  Company Number: DSA_42340_2010

PATIENT
  Sex: Male

DRUGS (1)
  1. ATIVAN [Suspect]
     Indication: INSOMNIA
     Dosage: (2 MG AT BEDTIME)

REACTIONS (1)
  - DRUG DEPENDENCE [None]
